FAERS Safety Report 5967895-1 (Version None)
Quarter: 2008Q4

REPORT INFORMATION
  Report Type: 
  Country: None (occurrence: None)
  Receive Date: 20081126
  Receipt Date: 20081120
  Transmission Date: 20090506
  Serious: Yes (Hospitalization)
  Sender: FDA-Public Use
  Company Number: US-NOVOPROD-280681

PATIENT
  Sex: Male
  Weight: 74.4 kg

DRUGS (17)
  1. NORDITROPIN NORDIFLEX [Suspect]
     Indication: HAEMODIALYSIS
     Dosage: 1.5 MG, QD
     Route: 058
     Dates: start: 20080613, end: 20081023
  2. NORDITROPIN NORDIFLEX [Suspect]
     Dosage: 1.5 MG, QD
     Route: 058
     Dates: start: 20081027
  3. CITALOPRAM HYDROBROMIDE [Concomitant]
     Indication: DEPRESSION
     Dosage: 40 MG, QD
     Route: 048
     Dates: start: 20080521
  4. CLONIDINE [Concomitant]
     Indication: BLOOD PRESSURE INCREASED
     Dosage: .1 MG, 4 PATCHES/28 DAYS
     Route: 061
     Dates: start: 20080908
  5. DIPHENHYDRAMINE HCL [Concomitant]
     Indication: HYPERSENSITIVITY
     Dosage: 25 MG, QD
     Route: 048
     Dates: start: 20081003
  6. GUAIFENESIN [Concomitant]
     Indication: COUGH
     Dosage: 5 ML, TID
     Route: 048
     Dates: start: 20081003
  7. GLIPIZIDE [Concomitant]
     Indication: TYPE 2 DIABETES MELLITUS
     Dosage: 5 MG, QD
     Route: 048
     Dates: start: 20080129
  8. IPRATROPIUM BROMIDE [Concomitant]
     Dosage: .03 %, TID
     Route: 045
     Dates: start: 20071105
  9. LABETALOL HCL [Concomitant]
     Dosage: 300 MG, BID
     Route: 048
     Dates: start: 20080630
  10. LISINOPRIL [Concomitant]
     Indication: BLOOD PRESSURE
     Dosage: 20 MG, QD
     Route: 048
     Dates: start: 20080122
  11. LORATADINE [Concomitant]
     Indication: HYPERSENSITIVITY
     Dosage: 10 MG, QD
     Route: 048
     Dates: start: 20071221
  12. LORAZEPAM [Concomitant]
     Indication: ANXIETY
     Dosage: 2 MG, QD
     Route: 048
     Dates: start: 20080808
  13. NIFEDIPINE [Concomitant]
     Dosage: 60 MG, BID
     Route: 048
     Dates: start: 20080630
  14. RANITIDINE [Concomitant]
     Indication: PROPHYLAXIS
     Dosage: 150 MG, QD
     Route: 048
     Dates: start: 20071105
  15. STRESSTABS                         /00512101/ [Concomitant]
     Indication: DRUG USE FOR UNKNOWN INDICATION
     Dosage: 600 W/ZINC, QD
     Route: 048
     Dates: start: 20080630
  16. VARDENAFIL HYDROCHLORIDE [Concomitant]
     Indication: ERECTILE DYSFUNCTION
  17. SIMVASTATIN [Concomitant]
     Indication: HYPERCHOLESTEROLAEMIA
     Dosage: 40 MG, QD
     Route: 048
     Dates: start: 20080523

REACTIONS (1)
  - GASTRODUODENITIS HAEMORRHAGIC [None]
